FAERS Safety Report 18751406 (Version 1)
Quarter: 2021Q1

REPORT INFORMATION
  Report Type: Spontaneous
  Country: CA (occurrence: CA)
  Receive Date: 20210118
  Receipt Date: 20210118
  Transmission Date: 20210419
  Serious: Yes (Other)
  Sender: FDA-Public Use
  Company Number: CA-PFIZER INC-2021024135

PATIENT
  Sex: Female

DRUGS (1)
  1. RITUXIMAB. [Suspect]
     Active Substance: RITUXIMAB
     Dosage: UNK
     Route: 065

REACTIONS (4)
  - Dysphagia [Recovered/Resolved]
  - Haemorrhoids [Recovered/Resolved]
  - Constipation [Recovered/Resolved]
  - Skin laceration [Recovered/Resolved]
